FAERS Safety Report 20535946 (Version 6)
Quarter: 2023Q2

REPORT INFORMATION
  Report Type: Report from Study
  Country: JP (occurrence: JP)
  Receive Date: 20220302
  Receipt Date: 20230502
  Transmission Date: 20230722
  Serious: Yes (Hospitalization, Other)
  Sender: FDA-Public Use
  Company Number: JP-ASTELLAS-2022JP003333

PATIENT
  Age: 7 Decade
  Sex: Male

DRUGS (4)
  1. ENFORTUMAB VEDOTIN [Suspect]
     Active Substance: ENFORTUMAB VEDOTIN
     Indication: Bladder cancer
     Route: 041
  2. ENFORTUMAB VEDOTIN [Suspect]
     Active Substance: ENFORTUMAB VEDOTIN
     Dosage: UNK UNK, UNKNOWN FREQ.
     Route: 041
     Dates: start: 20220506
  3. ENFORTUMAB VEDOTIN [Suspect]
     Active Substance: ENFORTUMAB VEDOTIN
     Dosage: UNK UNK, UNKNOWN FREQ.
     Route: 041
     Dates: start: 20220520
  4. ENFORTUMAB VEDOTIN [Suspect]
     Active Substance: ENFORTUMAB VEDOTIN
     Dosage: UNK UNK, UNKNOWN FREQ.
     Route: 041
     Dates: start: 20220606, end: 20230327

REACTIONS (8)
  - Myelosuppression [Recovered/Resolved]
  - Myelosuppression [Unknown]
  - Alopecia [Unknown]
  - Diarrhoea [Unknown]
  - Rash [Recovering/Resolving]
  - Haemoglobin decreased [Not Recovered/Not Resolved]
  - Haematuria [Not Recovered/Not Resolved]
  - Inappropriate schedule of product administration [Unknown]

NARRATIVE: CASE EVENT DATE: 20220221
